FAERS Safety Report 8886779 (Version 1)
Quarter: 2012Q4

REPORT INFORMATION
  Report Type: 
  Country: PT (occurrence: PT)
  Receive Date: 20121105
  Receipt Date: 20121105
  Transmission Date: 20130627
  Serious: Yes (Hospitalization)
  Sender: FDA-Public Use
  Company Number: PT-PFIZER INC-2012271676

PATIENT
  Age: 82 Year
  Sex: Female

DRUGS (1)
  1. TYGACIL [Suspect]
     Indication: SOFT TISSUE INFECTION
     Dosage: UNK
     Route: 042
     Dates: start: 20121023, end: 20121029

REACTIONS (2)
  - Hypofibrinogenaemia [Recovered/Resolved]
  - Wound haemorrhage [Recovered/Resolved]
